APPROVED DRUG PRODUCT: TELMISARTAN AND AMLODIPINE
Active Ingredient: AMLODIPINE BESYLATE; TELMISARTAN
Strength: EQ 10MG BASE;80MG
Dosage Form/Route: TABLET;ORAL
Application: A202516 | Product #004
Applicant: MYLAN PHARMACEUTICALS INC
Approved: Aug 26, 2014 | RLD: No | RS: No | Type: DISCN